FAERS Safety Report 15878068 (Version 3)
Quarter: 2019Q2

REPORT INFORMATION
  Report Type: Report from Study
  Country: IT (occurrence: IT)
  Receive Date: 20190128
  Receipt Date: 20190405
  Transmission Date: 20190711
  Serious: Yes (Other)
  Sender: FDA-Public Use
  Company Number: IT-ACCORD-103404

PATIENT
  Age: 75 Year
  Sex: Female

DRUGS (3)
  1. FLUOROURACIL. [Suspect]
     Active Substance: FLUOROURACIL
     Indication: OVARIAN CANCER
     Dosage: AT DAY 1, REPEATED ON DAY 29
     Route: 040
  2. INTERLEUKINS [Interacting]
     Active Substance: INTERLEUKIN NOS
     Indication: OVARIAN CANCER
     Dosage: 18 MUI/SQM ON DAYS 4-6 AND 18-20. THE CYCLE WAS REPEATED ON DAY 29
     Route: 058
  3. CYCLOPHOSPHAMIDE/CYCLOPHOSPHAMIDE MONOHYDRATE [Interacting]
     Active Substance: CYCLOPHOSPHAMIDE
     Indication: OVARIAN CANCER
     Dosage: ON DAY 1, REPEATED ON DAY 29
     Route: 042

REACTIONS (7)
  - Pyrexia [Recovered/Resolved]
  - Anaemia [Recovered/Resolved]
  - Disease progression [None]
  - Drug interaction [Unknown]
  - Off label use [Unknown]
  - Haemorrhage [Recovered/Resolved]
  - Influenza like illness [Recovered/Resolved]
